FAERS Safety Report 4801636-6 (Version None)
Quarter: 2005Q4

REPORT INFORMATION
  Report Type: 
  Country: None (occurrence: None)
  Receive Date: 20051018
  Receipt Date: 20051011
  Transmission Date: 20060501
  Serious: Yes (Hospitalization)
  Sender: FDA-Public Use
  Company Number: 200519050GDDC

PATIENT
  Age: 67 Year
  Sex: Female
  Weight: 96.27 kg

DRUGS (4)
  1. DOCETAXEL [Suspect]
     Indication: PANCREATIC CARCINOMA
     Route: 042
     Dates: start: 20051005, end: 20051005
  2. ENOXAPARIN SODIUM [Suspect]
     Route: 058
     Dates: start: 20051005, end: 20051005
  3. IRINOTECAN [Suspect]
     Indication: PANCREATIC CARCINOMA
     Route: 042
     Dates: start: 20051005, end: 20051005
  4. CETUXIMAB [Suspect]
     Indication: PANCREATIC CARCINOMA
     Route: 042
     Dates: start: 20051005, end: 20051005

REACTIONS (6)
  - CHOLINERGIC SYNDROME [None]
  - DIARRHOEA [None]
  - FEELING HOT [None]
  - MIXED INCONTINENCE [None]
  - SYNCOPE VASOVAGAL [None]
  - UNRESPONSIVE TO VERBAL STIMULI [None]
